FAERS Safety Report 15231003 (Version 2)
Quarter: 2019Q3

REPORT INFORMATION
  Report Type: Spontaneous
  Country: US (occurrence: US)
  Receive Date: 20180802
  Receipt Date: 20190805
  Transmission Date: 20191004
  Serious: Yes (Other)
  Sender: FDA-Public Use
  Company Number: US-ACCORD-064081

PATIENT
  Age: 43 Year
  Sex: Female
  Weight: 81.19 kg

DRUGS (21)
  1. PERTUZUMAB. [Suspect]
     Active Substance: PERTUZUMAB
     Indication: INVASIVE DUCTAL BREAST CARCINOMA
     Dates: start: 20151207, end: 20160329
  2. BACTROBAN [Concomitant]
     Active Substance: MUPIROCIN\MUPIROCIN CALCIUM
     Dosage: STRENGTH: 2% ?PLACE 1 APPLICATION TOPICALLY TWO TIMES PER DAY
     Route: 061
  3. NORCO [Concomitant]
     Active Substance: ACETAMINOPHEN\HYDROCODONE BITARTRATE
  4. DOCETAXEL ACCORD [Suspect]
     Active Substance: DOCETAXEL
     Indication: INVASIVE DUCTAL BREAST CARCINOMA
     Dosage: DOSE RANGED FROM 139 MG TO 141 MG?EVERY 3 WEEK
     Dates: start: 20151207, end: 20160307
  5. ERGOCALCIFEROL. [Concomitant]
     Active Substance: ERGOCALCIFEROL
     Dosage: STRENGTH: 50000 UNITS
     Route: 048
  6. EPIPEN [Concomitant]
     Active Substance: EPINEPHRINE
     Dosage: STRENGTH: 0.3 MG/0.3 ML
  7. GABAPENTIN. [Concomitant]
     Active Substance: GABAPENTIN
  8. PARAPLATIN [Suspect]
     Active Substance: CARBOPLATIN
     Indication: INVASIVE DUCTAL BREAST CARCINOMA
  9. HERCEPTIN [Suspect]
     Active Substance: TRASTUZUMAB
     Indication: INVASIVE DUCTAL BREAST CARCINOMA
     Dates: start: 20151207, end: 201611
  10. PEPCID [Concomitant]
     Active Substance: FAMOTIDINE
     Dosage: STRENGTH: 20 MG?TAKE 1 TAB BY MOUTH TWO TIMES PER DAY
     Route: 048
  11. FLUTICASONE. [Concomitant]
     Active Substance: FLUTICASONE
  12. LEVOTHYROXINE. [Concomitant]
     Active Substance: LEVOTHYROXINE
     Dosage: STRENGTH: 100 MCG
     Route: 048
     Dates: start: 201412
  13. ZYRTEC [Concomitant]
     Active Substance: CETIRIZINE HYDROCHLORIDE
     Dosage: STRENGTH: 10 MG
     Route: 048
  14. TYLENOL [Concomitant]
     Active Substance: ACETAMINOPHEN
     Dosage: STRENGTH: 325 MG ?TAKE 1-2 TABS BY MOUTH EVERY 6 HOURS AS NEEDED
     Route: 048
  15. ZOFRAN [Concomitant]
     Active Substance: ONDANSETRON HYDROCHLORIDE
     Indication: NAUSEA
     Dosage: STRENGTH: 8 MG?TAKE 1 TAB BY MOUTH EVERY 8 HOURS AS NEEDED
     Route: 048
  16. CLONAZEPAM. [Concomitant]
     Active Substance: CLONAZEPAM
  17. DEXAMETHASONE. [Concomitant]
     Active Substance: DEXAMETHASONE
     Dosage: STRENGTH: 4 MG?TAKE WITH FOOD 8 MG TWICE DAILY ON DAY BEFORE AND DAY OF TREATMENT.
     Route: 048
  18. VENLAFAXINE/VENLAFAXINE HYDROCHLORIDE [Concomitant]
  19. ADIPEX-P [Concomitant]
     Active Substance: PHENTERMINE HYDROCHLORIDE
     Dosage: STRENGTH: 37.5 MG
     Route: 048
  20. COMPAZINE [Concomitant]
     Active Substance: PROCHLORPERAZINE MALEATE
     Dosage: STRENGTH: 10 MG?TAKE 1 TAB BY MOUTH EVERY 6 HOURS AS NEEDED
     Route: 048
  21. NYSTATIN/NYSTATIN/LIPOSOME [Concomitant]

REACTIONS (1)
  - Alopecia [Not Recovered/Not Resolved]
